FAERS Safety Report 7341046-3 (Version None)
Quarter: 2011Q1

REPORT INFORMATION
  Report Type: 
  Country: None (occurrence: None)
  Receive Date: 20110301
  Receipt Date: 20110215
  Transmission Date: 20110831
  Serious: Yes (Disabling)
  Sender: FDA-Public Use
  Company Number: ACO_21838_2011

PATIENT
  Age: 33 Year
  Sex: Female

DRUGS (1)
  1. AMPYRA [Suspect]
     Indication: MULTIPLE SCLEROSIS
     Dosage: 10 MG, BID, ORAL
     Route: 048
     Dates: start: 20110113, end: 20110114

REACTIONS (3)
  - VOMITING [None]
  - ABASIA [None]
  - MUSCULAR WEAKNESS [None]
